FAERS Safety Report 13654806 (Version 1)
Quarter: 2017Q2

REPORT INFORMATION
  Report Type: Other
  Country: GB (occurrence: GB)
  Receive Date: 20170615
  Receipt Date: 20170615
  Transmission Date: 20170830
  Serious: Yes (Other)
  Sender: FDA-Public Use
  Company Number: GB-SHIRE-GB201711721

PATIENT
  Age: 5 Year
  Sex: Male

DRUGS (9)
  1. RANITIDINE. [Concomitant]
     Active Substance: RANITIDINE
     Indication: PRODUCT USED FOR UNKNOWN INDICATION
     Dosage: 25 MG (50 MG/2 ML), OTHER (25 MG 1/2 HOUR PRE INFUSION IV)
     Route: 042
  2. CETIRIZINE [Concomitant]
     Active Substance: CETIRIZINE HYDROCHLORIDE
     Indication: PRODUCT USED FOR UNKNOWN INDICATION
     Dosage: 2.5 MG, OTHER (1/2 HOUR PREINFUSION)
     Route: 048
  3. ELAPRASE [Suspect]
     Active Substance: IDURSULFASE
     Dosage: UNK
  4. PARACETAMOL [Concomitant]
     Active Substance: ACETAMINOPHEN
     Indication: PRODUCT USED FOR UNKNOWN INDICATION
     Dosage: 430 MG, OTHER (1/2 HOUR PREFUSION)
     Route: 048
  5. PARACETAMOL [Concomitant]
     Active Substance: ACETAMINOPHEN
     Dosage: 300 MG, OTHER (AT END OF INFUSION)
  6. IBUPROFEN. [Concomitant]
     Active Substance: IBUPROFEN
     Indication: PRODUCT USED FOR UNKNOWN INDICATION
     Dosage: 120 MG, OTHER (2 HOURS INTO INFUSION)
     Route: 048
  7. ELAPRASE [Suspect]
     Active Substance: IDURSULFASE
     Indication: MUCOPOLYSACCHARIDOSIS II
     Dosage: 12 MG (2MG/ML INJECTION 6MG VIAL), 1X/WEEK
     Route: 041
     Dates: start: 20150202
  8. EMLA [Suspect]
     Active Substance: LIDOCAINE\PRILOCAINE
     Indication: PRODUCT USED FOR UNKNOWN INDICATION
     Dosage: UNK, UNKNOWN
     Route: 061
  9. CETIRIZINE [Concomitant]
     Active Substance: CETIRIZINE HYDROCHLORIDE
     Dosage: 5 MG, OTHER (3 HOURS INTO INFUSION)
     Route: 048

REACTIONS (6)
  - Grunting [Recovered/Resolved]
  - Pyrexia [Recovered/Resolved]
  - Generalised erythema [Recovering/Resolving]
  - Central venous catheter removal [Recovered/Resolved]
  - Central venous catheterisation [Recovered/Resolved]
  - Vomiting [Recovering/Resolving]

NARRATIVE: CASE EVENT DATE: 20170519
